FAERS Safety Report 16451919 (Version 1)
Quarter: 2019Q2

REPORT INFORMATION
  Report Type: Report from Study
  Country: IL (occurrence: IL)
  Receive Date: 20190619
  Receipt Date: 20190619
  Transmission Date: 20190711
  Serious: Yes (Other)
  Sender: FDA-Public Use
  Company Number: IL-AMGEN-ISRSL2019095085

PATIENT
  Age: 78 Year
  Sex: Female

DRUGS (2)
  1. OCSAAR [LOSARTAN] [Concomitant]
     Indication: BLOOD PRESSURE MEASUREMENT
  2. PROLIA [Suspect]
     Active Substance: DENOSUMAB
     Indication: PRODUCT USED FOR UNKNOWN INDICATION
     Dosage: UNK
     Route: 065

REACTIONS (3)
  - Noninfective gingivitis [Unknown]
  - Malignant polyp [Unknown]
  - Uterine polyp [Unknown]

NARRATIVE: CASE EVENT DATE: 201710
